FAERS Safety Report 5321357-3 (Version None)
Quarter: 2007Q2

REPORT INFORMATION
  Report Type: 
  Country: None (occurrence: None)
  Receive Date: 20070510
  Receipt Date: 20070501
  Transmission Date: 20071010
  Serious: Yes (Death)
  Sender: FDA-Public Use
  Company Number: US-JNJFOC-20060902484

PATIENT
  Age: 42 Year
  Sex: Female

DRUGS (4)
  1. ASPIRIN [Suspect]
     Indication: SUICIDE ATTEMPT
     Route: 048
  2. SEROQUEL [Suspect]
     Indication: SUICIDE ATTEMPT
     Route: 048
  3. AMBIEN [Suspect]
     Indication: SUICIDE ATTEMPT
     Route: 048
  4. ACETAMINOPHEN [Concomitant]

REACTIONS (2)
  - COMPLETED SUICIDE [None]
  - MULTIPLE DRUG OVERDOSE INTENTIONAL [None]
